FAERS Safety Report 25380128 (Version 2)
Quarter: 2025Q2

REPORT INFORMATION
  Report Type: Report from Study
  Country: US (occurrence: US)
  Receive Date: 20250530
  Receipt Date: 20250606
  Transmission Date: 20250717
  Serious: Yes (Death, Life-Threatening, Hospitalization, Disabling, Other)
  Sender: EISAI
  Company Number: US-Eisai-EC-2025-190226

PATIENT
  Age: 78 Year
  Sex: Female
  Weight: 42.3 kg

DRUGS (4)
  1. LECANEMAB [Suspect]
     Active Substance: LECANEMAB
     Indication: Dementia Alzheimer^s type
     Dates: start: 20230613, end: 20240827
  2. CALCIUM CARBONATE\CHOLECALCIFEROL [Concomitant]
     Active Substance: CALCIUM CARBONATE\CHOLECALCIFEROL
  3. MELATONIN [Concomitant]
     Active Substance: MELATONIN
     Indication: Sleep disorder
     Dates: start: 2023
  4. DONEPEZIL [Concomitant]
     Active Substance: DONEPEZIL
     Indication: Dementia Alzheimer^s type

REACTIONS (2)
  - Biliary obstruction [Fatal]
  - Bile duct cancer [Fatal]

NARRATIVE: CASE EVENT DATE: 20240831
